FAERS Safety Report 9840049 (Version 1)
Quarter: 2013Q4

REPORT INFORMATION
  Report Type: Spontaneous
  Country: US (occurrence: None)
  Receive Date: 20131211
  Receipt Date: 20131211
  Transmission Date: 20140711
  Serious: No
  Sender: FDA-Public Use
  Company Number: ALL1-2012-02028

PATIENT
  Age: 40 Year
  Sex: Female

DRUGS (1)
  1. FIRAZYR (ICATIBANT) SOLUTION FOR INJECTION IN PRE-FILLED SYRINGE [Suspect]
     Indication: HEREDITARY ANGIOEDEMA
     Dates: start: 20120102

REACTIONS (2)
  - Injection site pain [None]
  - Injection site swelling [None]
